FAERS Safety Report 25724994 (Version 1)
Quarter: 2025Q3

REPORT INFORMATION
  Report Type: Spontaneous
  Country: US (occurrence: US)
  Receive Date: 20250826
  Receipt Date: 20250826
  Transmission Date: 20251020
  Serious: No
  Sender: AMNEAL
  Company Number: US-AMNEAL PHARMACEUTICALS-2025-AMRX-02356

PATIENT
  Sex: Female
  Weight: 58.957 kg

DRUGS (3)
  1. CREXONT [Suspect]
     Active Substance: CARBIDOPA\LEVODOPA
     Indication: Parkinson^s disease
     Dosage: 70/280 MG 2 CAPSULES, 3 /DAY
     Route: 048
     Dates: start: 20250514, end: 20250522
  2. CREXONT [Suspect]
     Active Substance: CARBIDOPA\LEVODOPA
     Route: 048
  3. LEXAPRO [Concomitant]
     Active Substance: ESCITALOPRAM OXALATE
     Indication: Product used for unknown indication
     Route: 048

REACTIONS (3)
  - Unevaluable event [Recovered/Resolved]
  - Drug intolerance [Unknown]
  - Insomnia [Recovered/Resolved]
